FAERS Safety Report 5927881-4 (Version None)
Quarter: 2008Q4

REPORT INFORMATION
  Report Type: 
  Country: None (occurrence: None)
  Receive Date: 20081021
  Receipt Date: 20081013
  Transmission Date: 20090506
  Serious: Yes (Hospitalization)
  Sender: FDA-Public Use
  Company Number: 2008AL010464

PATIENT
  Age: 83 Year
  Sex: Female
  Weight: 51.7101 kg

DRUGS (5)
  1. DIGOXIN [Suspect]
     Indication: CARDIAC DISORDER
     Dosage: 0.25MG, DAILY, PO;  HALF OF A TAB TWICE A WEEK, PO
     Route: 048
     Dates: start: 20060401, end: 20080401
  2. AGGRENOX [Concomitant]
  3. METOPROLOL TARTRATE [Concomitant]
  4. CORGARD [Concomitant]
  5. HYDRALAZINE HCL [Concomitant]

REACTIONS (6)
  - ASTHENIA [None]
  - DIZZINESS [None]
  - DYSPNOEA [None]
  - HEADACHE [None]
  - NAUSEA [None]
  - THERAPEUTIC AGENT TOXICITY [None]
